FAERS Safety Report 6500687-3 (Version None)
Quarter: 2009Q4

REPORT INFORMATION
  Report Type: 
  Country: None (occurrence: None)
  Receive Date: 20091216
  Receipt Date: 20090109
  Transmission Date: 20100525
  Serious: No
  Sender: FDA-Public Use
  Company Number: A0763009A

PATIENT
  Age: 49 Year
  Sex: Male

DRUGS (1)
  1. COMMIT [Suspect]
     Dates: start: 20090101, end: 20090101

REACTIONS (4)
  - DIZZINESS [None]
  - EXPIRED DRUG ADMINISTERED [None]
  - MALAISE [None]
  - VOMITING [None]
